FAERS Safety Report 7885938-5 (Version None)
Quarter: 2011Q4

REPORT INFORMATION
  Report Type: 
  Country: None (occurrence: None)
  Receive Date: 20111102
  Receipt Date: 20110701
  Transmission Date: 20120403
  Serious: No
  Sender: FDA-Public Use
  Company Number: US-AMGEN-USASP2011033796

PATIENT
  Age: 56 Year
  Sex: Female

DRUGS (1)
  1. ENBREL [Suspect]
     Indication: RHEUMATOID ARTHRITIS
     Dosage: 50 MG, QWK
     Dates: start: 20091007

REACTIONS (6)
  - RHINORRHOEA [None]
  - JOINT CREPITATION [None]
  - HYPERSENSITIVITY [None]
  - UPPER-AIRWAY COUGH SYNDROME [None]
  - INCREASED UPPER AIRWAY SECRETION [None]
  - EAR DISCOMFORT [None]
